FAERS Safety Report 4601972-2 (Version None)
Quarter: 2005Q1

REPORT INFORMATION
  Report Type: 
  Country: None (occurrence: None)
  Receive Date: 20050131
  Receipt Date: 20041202
  Transmission Date: 20050727
  Serious: Yes (Hospitalization)
  Sender: FDA-Public Use
  Company Number: 140826USA

PATIENT
  Age: 69 Year
  Sex: Female
  Weight: 60.3284 kg

DRUGS (3)
  1. AMOXICILLIN AND CLAVULANATE [Suspect]
     Indication: CELLULITIS
     Dates: start: 20030530, end: 20030618
  2. NEXIUM [Concomitant]
  3. HYPERTENSION [Concomitant]

REACTIONS (2)
  - CLOSTRIDIUM COLITIS [None]
  - COLITIS COLLAGENOUS [None]
